FAERS Safety Report 9467742 (Version 2)
Quarter: 2013Q3

REPORT INFORMATION
  Report Type: Report from Study
  Country: FR (occurrence: FR)
  Receive Date: 20130821
  Receipt Date: 20130821
  Transmission Date: 20140515
  Serious: Yes (Hospitalization, Other)
  Sender: FDA-Public Use
  Company Number: FR-ASTELLAS-2013EU001169

PATIENT
  Age: 63 Year
  Sex: Female

DRUGS (2)
  1. ADVAGRAF [Suspect]
     Indication: RENAL TRANSPLANT
     Dosage: UNK
     Route: 048
     Dates: start: 20120716, end: 20130120
  2. MYFORTIC [Suspect]
     Indication: RENAL TRANSPLANT
     Dosage: UNK
     Route: 048
     Dates: start: 20120715

REACTIONS (4)
  - Encephalopathy [Recovered/Resolved]
  - Respiratory distress [Recovered/Resolved]
  - Pancytopenia [Unknown]
  - Rhabdomyolysis [Unknown]
